FAERS Safety Report 5749009-6 (Version None)
Quarter: 2008Q2

REPORT INFORMATION
  Report Type: 
  Country: None (occurrence: None)
  Receive Date: 20080527
  Receipt Date: 20080514
  Transmission Date: 20081010
  Serious: Yes (Disabling)
  Sender: FDA-Public Use
  Company Number: NL-TEVA-171630ISR

PATIENT
  Sex: Male
  Weight: 84 kg

DRUGS (5)
  1. DICLOFENAC [Suspect]
     Indication: ARTHRALGIA
     Dates: start: 20070314, end: 20070321
  2. HYZAAR [Concomitant]
     Dosage: UNIT DOSE: 50/12.5 MG
  3. METFORMIN HYDROCHLORIDE [Concomitant]
  4. GLIMEPIRIDE [Concomitant]
  5. PRAVASTATIN [Concomitant]

REACTIONS (2)
  - BLINDNESS UNILATERAL [None]
  - RETINAL VEIN OCCLUSION [None]
